FAERS Safety Report 24377639 (Version 2)
Quarter: 2025Q1

REPORT INFORMATION
  Report Type: Spontaneous
  Country: US (occurrence: US)
  Receive Date: 20240930
  Receipt Date: 20250108
  Transmission Date: 20250409
  Serious: Yes (Disabling, Other)
  Sender: Kilitch Healthcare
  Company Number: US-KHC-000062

PATIENT
  Age: 58 Year
  Sex: Male

DRUGS (5)
  1. POLYVINYL ALCOHOL [Suspect]
     Active Substance: POLYVINYL ALCOHOL
     Indication: Product used for unknown indication
     Dosage: 1 DROP IN EACH EYE, FOR PAST 10 YEARS
     Route: 065
     Dates: end: 20231103
  2. FLUTICASONE [Concomitant]
     Active Substance: FLUTICASONE
     Indication: Product used for unknown indication
     Route: 065
  3. REFRESH OPTIVE [Concomitant]
     Active Substance: CARBOXYMETHYLCELLULOSE SODIUM\GLYCERIN
     Indication: Product used for unknown indication
     Route: 065
  4. AZELASTINE [Concomitant]
     Active Substance: AZELASTINE
     Indication: Product used for unknown indication
     Route: 065
  5. POLYVINYL ALCOHOL [Concomitant]
     Active Substance: POLYVINYL ALCOHOL
     Indication: Dry eye
     Route: 065
     Dates: start: 2016, end: 2023

REACTIONS (2)
  - Recalled product administered [Unknown]
  - Blindness [Unknown]
